FAERS Safety Report 7024775 (Version 3)
Quarter: 2014Q1

REPORT INFORMATION
  Report Type: Report from Study
  Country: US (occurrence: US)
  Receive Date: 20090616
  Receipt Date: 20140226
  Transmission Date: 20141002
  Serious: Yes (Other)
  Sender: FDA-Public Use
  Company Number: US-GILEAD-2009-0022464

PATIENT
  Age: 35 Year
  Sex: Female

DRUGS (3)
  1. TRUVADA [Suspect]
     Indication: HIV INFECTION
     Route: 048
     Dates: start: 20090227
  2. KALETRA [Concomitant]
     Indication: HIV INFECTION
     Dosage: 1 DF, UNK
     Route: 048
     Dates: start: 20090227
  3. RETROVIR [Concomitant]
     Indication: HIV INFECTION
     Dosage: UNK
     Route: 042
     Dates: start: 20090529, end: 20090529

REACTIONS (1)
  - Premature delivery [Recovered/Resolved]
